FAERS Safety Report 9265833 (Version 1)
Quarter: 2013Q2

REPORT INFORMATION
  Report Type: Spontaneous
  Country: GB (occurrence: GB)
  Receive Date: 20130501
  Receipt Date: 20130501
  Transmission Date: 20140414
  Serious: Yes (Hospitalization)
  Sender: FDA-Public Use
  Company Number: GB-TEVA-400460ISR

PATIENT
  Age: 44 Year
  Sex: Female

DRUGS (10)
  1. ONDANSETRON [Suspect]
     Dosage: 4MG
     Route: 065
  2. PROPOFOL [Suspect]
     Indication: INDUCTION OF ANAESTHESIA
     Route: 065
  3. PROPOFOL [Suspect]
     Indication: MAINTENANCE OF ANAESTHESIA
     Dosage: INFUSION
     Route: 050
  4. FENTANYL [Concomitant]
     Indication: INDUCTION OF ANAESTHESIA
     Route: 065
  5. ATRACURIUM BESILATE [Concomitant]
     Indication: INDUCTION OF ANAESTHESIA
     Route: 065
  6. DEXAMETHASONE [Concomitant]
     Dosage: 8MG
     Route: 065
  7. PARACETAMOL [Concomitant]
     Dosage: 1G
     Route: 065
  8. DICLOFENAC [Concomitant]
     Dosage: 75MG
     Route: 065
  9. NEOSTIGMINE [Concomitant]
     Indication: NEUROMUSCULAR BLOCKADE REVERSAL
     Dosage: 2.5MG
     Route: 065
  10. GLYCOPYRROLATE [Concomitant]
     Indication: NEUROMUSCULAR BLOCKADE REVERSAL
     Dosage: 500 MICROGRAM
     Route: 065

REACTIONS (4)
  - Oculogyric crisis [Recovered/Resolved]
  - Dystonia [Recovered/Resolved]
  - Muscle twitching [Unknown]
  - Asthenia [Unknown]
